FAERS Safety Report 16613216 (Version 2)
Quarter: 2019Q3

REPORT INFORMATION
  Report Type: Spontaneous
  Country: US (occurrence: US)
  Receive Date: 20190722
  Receipt Date: 20190821
  Transmission Date: 20191004
  Serious: Yes (Other)
  Sender: FDA-Public Use
  Company Number: US-009507513-1907USA010786

PATIENT
  Age: 21 Year
  Sex: Female
  Weight: 82.1 kg

DRUGS (1)
  1. NEXPLANON [Suspect]
     Active Substance: ETONOGESTREL
     Indication: CONTRACEPTION
     Dosage: 1 IMPLANT (68 MILLIGRAM), ONCE EVERY THREE YEARS
     Route: 059
     Dates: start: 2018

REACTIONS (6)
  - Device expulsion [Unknown]
  - Intentional medical device removal by patient [Unknown]
  - Device breakage [Unknown]
  - Complication associated with device [Unknown]
  - Complication of device removal [Unknown]
  - Device dislocation [Unknown]

NARRATIVE: CASE EVENT DATE: 20190711
